FAERS Safety Report 8010007 (Version 4)
Quarter: 2012Q4

REPORT INFORMATION
  Report Type: Report from Study
  Country: JP (occurrence: None)
  Receive Date: 20110603
  Receipt Date: 20121226
  Transmission Date: 20130627
  Serious: Yes (Death)
  Sender: FDA-Public Use
  Company Number: TCI2010A03236

PATIENT
  Age: 72 Year
  Sex: Male

DRUGS (3)
  1. ACTOS [Suspect]
     Indication: TYPE 2 DIABETES MELLITUS
     Dosage: 15 MG, (15 MG, 1 D), PER ORAL

425 Days
     Route: 048
     Dates: start: 20090129, end: 20100330
  2. DIURETICS [Concomitant]
  3. ALPHA GLUCOSIDASE INHIBITORS [Concomitant]

REACTIONS (5)
  - Gamma-glutamyltransferase increased [None]
  - Interstitial lung disease [None]
  - Aspartate aminotransferase increased [None]
  - Alanine aminotransferase increased [None]
  - Cell marker increased [None]
